FAERS Safety Report 7720166-5 (Version None)
Quarter: 2011Q3

REPORT INFORMATION
  Report Type: 
  Country: None (occurrence: None)
  Receive Date: 20110831
  Receipt Date: 20110817
  Transmission Date: 20111222
  Serious: Yes (Other)
  Sender: FDA-Public Use
  Company Number: JP-EISAI INC-E7389-01401-SPO-JP

PATIENT
  Age: 41 Year
  Sex: Female

DRUGS (4)
  1. HALAVEN [Suspect]
     Route: 041
     Dates: start: 20110802
  2. PRIMPERAN TAB [Concomitant]
  3. KYTRIL [Concomitant]
  4. MOTILIUM [Concomitant]

REACTIONS (3)
  - NAUSEA [None]
  - HEPATIC FUNCTION ABNORMAL [None]
  - VOMITING [None]
